FAERS Safety Report 8710023 (Version 2)
Quarter: 2013Q4

REPORT INFORMATION
  Report Type: Spontaneous
  Country: US (occurrence: US)
  Receive Date: 20120806
  Receipt Date: 20131105
  Transmission Date: 20140711
  Serious: Yes (Hospitalization)
  Sender: FDA-Public Use
  Company Number: US-009507513-1207USA011235

PATIENT
  Sex: Female

DRUGS (18)
  1. ZOCOR [Suspect]
  2. PRADAXA [Suspect]
     Dosage: 150 MG, BID
     Route: 048
  3. FURIX [Suspect]
     Dosage: 1 DF, UNK
  4. ISOPTIN RETARD [Suspect]
     Dosage: 1 DF, UNK
  5. DIGOXIN [Suspect]
  6. SERETIDE [Suspect]
     Dosage: 1 DF, UNK
  7. PREDNISOLONE [Suspect]
  8. BRICANYL [Suspect]
     Dosage: 1 DF, UNK
  9. SERTRALINE HYDROCHLORIDE [Suspect]
     Dosage: 1 DF, UNK
  10. OXAPAX [Suspect]
     Dosage: 1 DF, UNK
  11. STILNOCT [Suspect]
     Dosage: 1 DF, UNK
  12. PAMOL [Suspect]
     Dosage: 1 DF, UNK
  13. DUOVENT [Suspect]
     Dosage: 1 DF, UNK
  14. LOSARTAN POTASSIUM [Suspect]
     Dosage: 1 DF, UNK
  15. CONTALGIN [Suspect]
     Dosage: 1 DF, UNK
  16. BERODUAL [Suspect]
     Dosage: 1 DF, UNK
  17. KALEORID [Suspect]
  18. SPIRIVA [Suspect]

REACTIONS (3)
  - Gastric ulcer [Unknown]
  - Iron deficiency anaemia [Unknown]
  - Abdominal pain upper [Unknown]
